FAERS Safety Report 22287925 (Version 2)
Quarter: 2023Q2

REPORT INFORMATION
  Report Type: Spontaneous
  Country: JP (occurrence: JP)
  Receive Date: 20230505
  Receipt Date: 20230515
  Transmission Date: 20230722
  Serious: Yes (Other)
  Sender: FDA-Public Use
  Company Number: JP-MLMSERVICE-20230419-4233549-1

PATIENT
  Age: 47 Year
  Sex: Female

DRUGS (5)
  1. FLUOROURACIL [Suspect]
     Active Substance: FLUOROURACIL
     Indication: Adenocarcinoma pancreas
     Dosage: 400 MG/M2 BY INTRAVENOUS BOLUS AND CONTINUOUS INFUSION OF 2400 MG/M2 OVER A 46-H PERIOD
     Route: 042
  2. IRINOTECAN HYDROCHLORIDE [Suspect]
     Active Substance: IRINOTECAN HYDROCHLORIDE
     Indication: Adenocarcinoma pancreas
     Dosage: EVERY 2WEEKS
  3. OXALIPLATIN [Suspect]
     Active Substance: OXALIPLATIN
     Indication: Adenocarcinoma pancreas
  4. LEUCOVORIN [Suspect]
     Active Substance: LEUCOVORIN
     Indication: Adenocarcinoma pancreas
     Dosage: EVERY 2WEEKS
  5. FLUOROURACIL [Suspect]
     Active Substance: FLUOROURACIL
     Indication: Adenocarcinoma pancreas
     Dosage: 400 MG/M2 BY INTRAVENOUS BOLUS AND CONTINUOUS INFUSION OF 2400 MG/M2 OVER A 46-H PERIOD
     Route: 042

REACTIONS (1)
  - Neuropathy peripheral [Unknown]
